FAERS Safety Report 5976547-3 (Version None)
Quarter: 2008Q4

REPORT INFORMATION
  Report Type: 
  Country: None (occurrence: None)
  Receive Date: 20081125
  Receipt Date: 20081110
  Transmission Date: 20090506
  Serious: Yes (Death, Other)
  Sender: FDA-Public Use
  Company Number: 2008002947

PATIENT
  Age: 47 Year
  Sex: Male

DRUGS (11)
  1. ERLOTINIB (ERLOTINIB) (TABLET) (ERLOTINIB) [Suspect]
     Indication: LUNG SQUAMOUS CELL CARCINOMA STAGE UNSPECIFIED
     Dosage: 150 MG, QD, ORAL
     Route: 048
     Dates: start: 20080805, end: 20080827
  2. LOXOPROFEN (LOXOPROFEN) [Concomitant]
  3. AMOXAPINE [Concomitant]
  4. NOVAMIN (PROCHLORPERAZINE) [Concomitant]
  5. LAC-B [Concomitant]
  6. PREDNISOLONE [Concomitant]
  7. OXINORM (ORGOTEIN) [Concomitant]
  8. OXYCONTIN [Concomitant]
  9. ZOMETA [Concomitant]
  10. FENTANYL-100 [Concomitant]
  11. ROPION (FLURBIPROFEN AXETIL) [Concomitant]

REACTIONS (5)
  - DISSEMINATED INTRAVASCULAR COAGULATION [None]
  - HEPATIC FAILURE [None]
  - INTESTINAL OBSTRUCTION [None]
  - LUNG SQUAMOUS CELL CARCINOMA STAGE UNSPECIFIED [None]
  - MALIGNANT NEOPLASM PROGRESSION [None]
